FAERS Safety Report 5342426-8 (Version None)
Quarter: 2007Q2

REPORT INFORMATION
  Report Type: 
  Country: None (occurrence: None)
  Receive Date: 20070601
  Receipt Date: 20070522
  Transmission Date: 20071010
  Serious: Yes (Hospitalization)
  Sender: FDA-Public Use
  Company Number: SE-PFIZER INC-2007041068

PATIENT
  Sex: Female

DRUGS (6)
  1. DALACIN [Suspect]
     Indication: CELLULITIS
     Route: 048
     Dates: start: 20070201, end: 20070201
  2. DALACIN [Suspect]
     Indication: ABSCESS
  3. BISOPROLOL FUMARATE [Concomitant]
     Route: 048
  4. WARAN [Concomitant]
     Route: 048
  5. SURMONTIL [Concomitant]
     Route: 048
  6. CALCICHEW-D3 [Concomitant]
     Route: 048

REACTIONS (2)
  - DIARRHOEA [None]
  - DIARRHOEA INFECTIOUS [None]
